FAERS Safety Report 10566213 (Version 2)
Quarter: 2014Q4

REPORT INFORMATION
  Report Type: Report from Study
  Country: DE (occurrence: DE)
  Receive Date: 20141105
  Receipt Date: 20141112
  Transmission Date: 20150529
  Serious: Yes (Death, Hospitalization)
  Sender: FDA-Public Use
  Company Number: DE-INCYTE CORPORATION-2014IN003307

PATIENT
  Sex: Male

DRUGS (15)
  1. EXJADE [Concomitant]
     Active Substance: DEFERASIROX
     Dosage: 375 OT, UNK
     Route: 065
     Dates: start: 20140220, end: 20140305
  2. ALLOPURINOL. [Concomitant]
     Active Substance: ALLOPURINOL
     Indication: HYPERURICAEMIA
     Dosage: 150 OT, UNK
     Route: 065
     Dates: start: 20140410, end: 201410
  3. FOLSAN [Concomitant]
     Active Substance: FOLIC ACID
     Indication: FOLATE DEFICIENCY
     Dosage: UNK MG, UNK
     Route: 065
     Dates: start: 20140410, end: 201410
  4. PANTOPRAZOLE [Concomitant]
     Active Substance: PANTOPRAZOLE SODIUM
     Indication: DYSPEPSIA
     Dosage: UNK MG, UNK
     Route: 065
     Dates: start: 20140825, end: 201410
  5. QUINAPLUS [Concomitant]
     Indication: HYPERTENSION
     Route: 065
     Dates: end: 201410
  6. EXJADE [Concomitant]
     Active Substance: DEFERASIROX
     Indication: HAEMOCHROMATOSIS
     Dosage: 250 OT, UNK
     Route: 065
     Dates: start: 20131210, end: 20140106
  7. EXJADE [Concomitant]
     Active Substance: DEFERASIROX
     Dosage: 250 OT, UNK
     Route: 065
     Dates: start: 20140306, end: 20140710
  8. EXJADE [Concomitant]
     Active Substance: DEFERASIROX
     Dosage: 500 OT, UNK
     Route: 065
     Dates: start: 20140107, end: 20140219
  9. CIPROFLOXACIN. [Concomitant]
     Active Substance: CIPROFLOXACIN
     Indication: PYREXIA
     Dosage: 500 UNK, UNK
     Route: 065
     Dates: start: 20140618, end: 20140622
  10. NOVAMINSULFON [Concomitant]
     Active Substance: METAMIZOLE
     Indication: BACK PAIN
     Dosage: 60 GTT, UNK
     Route: 065
     Dates: start: 20141022
  11. INCB018424 [Suspect]
     Active Substance: RUXOLITINIB
     Dosage: 5 MG, QD
     Route: 048
     Dates: start: 20140210
  12. NACL [Concomitant]
     Active Substance: SODIUM CHLORIDE
     Indication: PRODUCT USED FOR UNKNOWN INDICATION
     Dosage: UNK L, UNK
     Route: 065
     Dates: start: 20140617, end: 20140617
  13. INCB018424 [Suspect]
     Active Substance: RUXOLITINIB
     Indication: MYELOFIBROSIS
     Dosage: 10 MG, QD
     Route: 048
     Dates: start: 20140116
  14. VOMEX A [Concomitant]
     Active Substance: DIMENHYDRINATE
     Indication: NAUSEA
     Dosage: 62 UNK, UNK
     Route: 065
     Dates: start: 20140604, end: 20140604
  15. DESFERAL [Concomitant]
     Active Substance: DEFEROXAMINE MESYLATE
     Indication: HAEMOCHROMATOSIS
     Dosage: 2 G, (3X PER WEEK)
     Route: 065
     Dates: start: 20140710, end: 20140724

REACTIONS (2)
  - Septic shock [Fatal]
  - Peritonitis [Fatal]

NARRATIVE: CASE EVENT DATE: 20141026
